FAERS Safety Report 7584584-0 (Version None)
Quarter: 2011Q2

REPORT INFORMATION
  Report Type: 
  Country: None (occurrence: None)
  Receive Date: 20110630
  Receipt Date: 20110621
  Transmission Date: 20111010
  Serious: Yes (Other)
  Sender: FDA-Public Use
  Company Number: US-US-EMD SERONO, INC.-7066815

PATIENT
  Sex: Female
  Weight: 104 kg

DRUGS (3)
  1. UNSPECIFIED DEPRESSION MEDICATIONS [Concomitant]
     Indication: DEPRESSION
  2. UNSPECIFIED MEDICATIONS [Concomitant]
  3. REBIF [Suspect]
     Indication: MULTIPLE SCLEROSIS
     Route: 058
     Dates: start: 20071108, end: 20110501

REACTIONS (1)
  - UTERINE CANCER [None]
